FAERS Safety Report 7495436-9 (Version None)
Quarter: 2011Q2

REPORT INFORMATION
  Report Type: 
  Country: None (occurrence: None)
  Receive Date: 20110523
  Receipt Date: 20110502
  Transmission Date: 20111010
  Serious: No
  Sender: FDA-Public Use
  Company Number: US-TYCO HEALTHCARE/MALLINCKRODT-T201100884

PATIENT

DRUGS (9)
  1. CRESTOR [Concomitant]
     Indication: BLOOD CHOLESTEROL INCREASED
     Dosage: 10 MG, QD
  2. FENTANYL-100 [Suspect]
     Indication: PAIN
     Dosage: 200 UG/HR EVERY 60 HOURS
     Route: 062
     Dates: start: 20110401
  3. NEXIUM [Concomitant]
     Indication: HIATUS HERNIA
     Dosage: 40 MG, QD
  4. VIMPAT [Concomitant]
     Indication: CONVULSION
     Dosage: 300 MG, BID
  5. FENTANYL-100 [Suspect]
     Indication: CANCER PAIN
  6. CARAFATE [Concomitant]
     Dosage: 1 GM/10 ML, 2 TBS BEFORE MEALS
  7. FENTANYL-100 [Suspect]
     Indication: BACK PAIN
  8. XANAX [Concomitant]
     Indication: SUPRAVENTRICULAR TACHYCARDIA
     Dosage: 1 MG, TID
  9. CATAPRES                           /00171101/ [Concomitant]
     Indication: HYPERTENSION
     Dosage: .03 MG, TID

REACTIONS (1)
  - DRUG EFFECT DECREASED [None]
